FAERS Safety Report 6188047-9 (Version None)
Quarter: 2009Q2

REPORT INFORMATION
  Report Type: 
  Country: None (occurrence: None)
  Receive Date: 20090513
  Receipt Date: 20090504
  Transmission Date: 20091009
  Serious: Yes (Hospitalization)
  Sender: FDA-Public Use
  Company Number: FR-ASTRAZENECA-2009CG00554

PATIENT
  Age: 61 Year
  Sex: Male

DRUGS (7)
  1. NEXIUM [Suspect]
     Route: 048
     Dates: start: 20090213, end: 20090223
  2. OMEPRAZOLE [Suspect]
     Dates: start: 20090224, end: 20090311
  3. BI-PROFENID [Suspect]
     Route: 048
     Dates: start: 20090213, end: 20090223
  4. ACETAMINOPHEN [Suspect]
     Dates: start: 20090213
  5. LOVENOX [Suspect]
     Route: 058
     Dates: start: 20090213, end: 20090217
  6. KARDEGIC [Suspect]
     Indication: ARTERITIS OBLITERANS
     Route: 048
  7. CRESTOR [Concomitant]
     Indication: HYPERCHOLESTEROLAEMIA
     Route: 048

REACTIONS (1)
  - IDIOPATHIC THROMBOCYTOPENIC PURPURA [None]
